FAERS Safety Report 7673281-9 (Version None)
Quarter: 2011Q3

REPORT INFORMATION
  Report Type: 
  Country: None (occurrence: None)
  Receive Date: 20110810
  Receipt Date: 20110726
  Transmission Date: 20111222
  Serious: Yes (Hospitalization)
  Sender: FDA-Public Use
  Company Number: FR-JNJFOC-20110801162

PATIENT
  Sex: Female

DRUGS (3)
  1. ACETAMINOPHEN AND TRAMADOL HCL [Suspect]
     Indication: PAIN
     Route: 048
     Dates: start: 20110601, end: 20110604
  2. GESTODENE AND ETHINYL ESTRADIOL [Concomitant]
     Indication: CONTRACEPTION
     Route: 065
     Dates: start: 20101101
  3. CONCERTA [Suspect]
     Indication: MENTAL DISORDER
     Route: 048
     Dates: start: 20101101, end: 20110605

REACTIONS (7)
  - TACHYCARDIA [None]
  - DYSPNOEA [None]
  - PALPITATIONS [None]
  - CHEST DISCOMFORT [None]
  - DRUG PRESCRIBING ERROR [None]
  - OFF LABEL USE [None]
  - BRADYCARDIA [None]
